FAERS Safety Report 9877931 (Version 1)
Quarter: 2014Q1

REPORT INFORMATION
  Report Type: Report from Study
  Country: US (occurrence: US)
  Receive Date: 20140206
  Receipt Date: 20140206
  Transmission Date: 20141002
  Serious: Yes (Other)
  Sender: FDA-Public Use
  Company Number: PHEH2014US002585

PATIENT
  Age: 36 Year
  Sex: Female
  Weight: 79.37 kg

DRUGS (1)
  1. GILENYA [Suspect]
     Indication: MULTIPLE SCLEROSIS
     Dosage: 0.5 MG, QD
     Route: 048
     Dates: start: 20140204

REACTIONS (3)
  - Electrocardiogram abnormal [Recovered/Resolved]
  - Heart rate irregular [Recovered/Resolved]
  - Heart rate decreased [Recovered/Resolved]
